FAERS Safety Report 12155946 (Version 5)
Quarter: 2017Q2

REPORT INFORMATION
  Report Type: Report from Study
  Country: US (occurrence: US)
  Receive Date: 20160307
  Receipt Date: 20170526
  Transmission Date: 20170829
  Serious: No
  Sender: FDA-Public Use
  Company Number: PHEH2014US018217

PATIENT
  Age: 26 Year
  Sex: Female

DRUGS (3)
  1. AFINITOR [Suspect]
     Active Substance: EVEROLIMUS
     Indication: ANGIOMYOLIPOMA
     Dosage: 10 MG, QD
     Route: 048
     Dates: start: 20140901, end: 20140910
  2. AFINITOR [Suspect]
     Active Substance: EVEROLIMUS
     Dosage: 2.5 MG, QD
     Route: 048
     Dates: start: 20160314
  3. AFINITOR [Suspect]
     Active Substance: EVEROLIMUS
     Dosage: 7.5 MG, QD
     Route: 048
     Dates: start: 20160206

REACTIONS (5)
  - Skin exfoliation [Recovering/Resolving]
  - Oral pain [Not Recovered/Not Resolved]
  - Vaginal infection [Recovered/Resolved]
  - Swelling face [Recovered/Resolved]
  - Vaginal infection [Recovered/Resolved]

NARRATIVE: CASE EVENT DATE: 20140910
